FAERS Safety Report 7198218-0 (Version None)
Quarter: 2010Q4

REPORT INFORMATION
  Report Type: 
  Country: None (occurrence: None)
  Receive Date: 20101223
  Receipt Date: 20101223
  Transmission Date: 20110411
  Serious: Yes (Other)
  Sender: FDA-Public Use
  Company Number: None

PATIENT
  Sex: Female

DRUGS (1)
  1. DAILY WOMEN'S HEALTH FORMULA 1 TABLET GARDEN STATE NUTRITIONALS [Suspect]
     Indication: VITAMIN SUPPLEMENTATION
     Dosage: 1 TABLET ONCE DAILY PO
     Route: 048
     Dates: start: 20101001, end: 20101005

REACTIONS (1)
  - CONVULSION [None]
